FAERS Safety Report 10330858 (Version 1)
Quarter: 2014Q3

REPORT INFORMATION
  Report Type: Report from Study
  Country: GB (occurrence: GB)
  Receive Date: 20140722
  Receipt Date: 20140722
  Transmission Date: 20150326
  Serious: Yes (Death)
  Sender: FDA-Public Use
  Company Number: GB-ROCHE-1438122

PATIENT
  Age: 74 Year
  Sex: Male

DRUGS (9)
  1. DEXTROSE, SODIUM CHLORIDE, AND POTASSIUM CHLORIDE [Concomitant]
     Active Substance: DEXTROSE\POTASSIUM CHLORIDE\SODIUM CHLORIDE
     Indication: COLON CANCER
     Route: 042
     Dates: end: 20130314
  2. BEVACIZUMAB [Suspect]
     Active Substance: BEVACIZUMAB
     Indication: COLON CANCER
     Route: 042
     Dates: end: 20130314
  3. LOPERAMIDE [Concomitant]
     Active Substance: LOPERAMIDE
     Indication: COLON CANCER
     Route: 048
     Dates: end: 20130314
  4. GLUCOSE 5% [Concomitant]
     Active Substance: DEXTROSE
     Indication: COLON CANCER
     Route: 042
     Dates: end: 20130314
  5. OXALIPLATIN. [Concomitant]
     Active Substance: OXALIPLATIN
     Indication: COLON CANCER
     Route: 042
     Dates: end: 20130314
  6. CAPECITABINE [Suspect]
     Active Substance: CAPECITABINE
     Indication: COLON CANCER
     Route: 048
     Dates: end: 20130314
  7. DEXAMETHASONE. [Concomitant]
     Active Substance: DEXAMETHASONE
     Indication: COLON CANCER
     Route: 048
     Dates: end: 20130314
  8. ONDANSETRON [Concomitant]
     Active Substance: ONDANSETRON
     Indication: COLON CANCER
     Route: 048
     Dates: end: 20130314
  9. DOMPERIDONE [Concomitant]
     Active Substance: DOMPERIDONE
     Indication: COLON CANCER
     Route: 048
     Dates: end: 20130314

REACTIONS (1)
  - Death [Fatal]
